FAERS Safety Report 4476513-3 (Version None)
Quarter: 2004Q4

REPORT INFORMATION
  Report Type: 
  Country: None (occurrence: None)
  Receive Date: 20041013
  Receipt Date: 20040927
  Transmission Date: 20050328
  Serious: Yes (Death, Hospitalization, Disabling, Other)
  Sender: FDA-Public Use
  Company Number: USA040773019

PATIENT
  Age: 89 Year
  Sex: Female
  Weight: 55 kg

DRUGS (9)
  1. HUMULIN N [Suspect]
     Indication: DIABETES MELLITUS
     Dosage: 45 U IN THE MORNING
     Dates: start: 19920101
  2. EVISTA [Suspect]
     Indication: OSTEOPOROSIS
     Dates: start: 20010101, end: 20040601
  3. FORTEO [Suspect]
     Indication: OSTEOPOROSIS
     Dates: start: 20040630, end: 20040715
  4. XALATAN [Concomitant]
  5. CELEBREX [Concomitant]
  6. POTASSIUM [Concomitant]
  7. ALTACE [Concomitant]
  8. DIGITALIS [Concomitant]
  9. TIMOLOL MALEATE [Concomitant]

REACTIONS (18)
  - ARTHRITIS [None]
  - BEDRIDDEN [None]
  - BLOOD GLUCOSE DECREASED [None]
  - CARDIAC DISORDER [None]
  - CARDIAC FAILURE CONGESTIVE [None]
  - CEREBROVASCULAR DISORDER [None]
  - CHOKING [None]
  - CIRCULATORY COLLAPSE [None]
  - CORONARY ARTERY DISEASE [None]
  - COUGH [None]
  - GLAUCOMA [None]
  - LIVING IN RESIDENTIAL INSTITUTION [None]
  - MACULAR DEGENERATION [None]
  - MOBILITY DECREASED [None]
  - OSTEOPOROSIS [None]
  - PHARMACEUTICAL PRODUCT COMPLAINT [None]
  - VOMITING [None]
  - WEIGHT DECREASED [None]
